FAERS Safety Report 6136627-9 (Version None)
Quarter: 2009Q1

REPORT INFORMATION
  Report Type: 
  Country: None (occurrence: None)
  Receive Date: 20090330
  Receipt Date: 20090324
  Transmission Date: 20090719
  Serious: Yes (Hospitalization)
  Sender: FDA-Public Use
  Company Number: A0769786A

PATIENT
  Age: 53 Year
  Sex: Female

DRUGS (12)
  1. TYKERB [Suspect]
     Indication: BREAST CANCER
     Dosage: 750MG PER DAY
     Route: 048
     Dates: start: 20090216
  2. XELODA [Concomitant]
  3. EFFEXOR [Concomitant]
  4. REGLAN [Concomitant]
  5. DEXAMETHASONE [Concomitant]
  6. WARFARIN SODIUM [Concomitant]
  7. AMBIEN [Concomitant]
  8. ZOFRAN [Concomitant]
  9. KEPPRA [Concomitant]
  10. MS CONTIN [Concomitant]
  11. RESTORIL [Concomitant]
  12. PROTONIX [Concomitant]

REACTIONS (3)
  - CONVULSION [None]
  - DIARRHOEA [None]
  - PALMAR-PLANTAR ERYTHRODYSAESTHESIA SYNDROME [None]
